FAERS Safety Report 6098095-5 (Version None)
Quarter: 2009Q1

REPORT INFORMATION
  Report Type: 
  Country: None (occurrence: None)
  Receive Date: 20090227
  Receipt Date: 20090224
  Transmission Date: 20090719
  Serious: No
  Sender: FDA-Public Use
  Company Number: US-B.I. PHARMACEUTICALS,INC./RIDGEFIELD-2009-BP-01319BP

PATIENT
  Age: 82 Year
  Sex: Male

DRUGS (13)
  1. SPIRIVA [Suspect]
     Indication: CHRONIC OBSTRUCTIVE PULMONARY DISEASE
     Dosage: 18MCG
     Route: 055
     Dates: start: 20080801
  2. SPIRIVA [Suspect]
     Indication: EMPHYSEMA
  3. SPIRIVA [Suspect]
     Indication: BRONCHITIS
  4. ALBUTEROL [Concomitant]
     Indication: CHRONIC OBSTRUCTIVE PULMONARY DISEASE
  5. ASMANEX TWISTHALER [Concomitant]
     Indication: CHRONIC OBSTRUCTIVE PULMONARY DISEASE
  6. CHOLESTEROL MED (UNKNOWN NAME) [Concomitant]
     Indication: BLOOD CHOLESTEROL INCREASED
  7. ASPIRIN [Concomitant]
  8. LISINOPRIL [Concomitant]
  9. PREDNISONE [Concomitant]
  10. RANITIDINE [Concomitant]
  11. SIMVASTATIN [Concomitant]
  12. LORAZEPAM [Concomitant]
  13. COMBIVENT [Concomitant]

REACTIONS (4)
  - DRUG EFFECT DECREASED [None]
  - DRUG INEFFECTIVE [None]
  - DYSPNOEA [None]
  - GENERAL PHYSICAL HEALTH DETERIORATION [None]
